FAERS Safety Report 5132983-9 (Version None)
Quarter: 2006Q4

REPORT INFORMATION
  Report Type: 
  Country: None (occurrence: None)
  Receive Date: 20061017
  Receipt Date: 20061002
  Transmission Date: 20070319
  Serious: Yes (Hospitalization)
  Sender: FDA-Public Use
  Company Number: GXKR2006JP06292

PATIENT
  Age: 10 Day
  Sex: Male

DRUGS (1)
  1. METHYLDOPA [Suspect]
     Dosage: TRANSPLACENTAL
     Route: 064

REACTIONS (12)
  - CAESAREAN SECTION [None]
  - CONGENITAL CYTOMEGALOVIRUS INFECTION [None]
  - CYST [None]
  - DEAFNESS NEUROSENSORY [None]
  - DILATATION VENTRICULAR [None]
  - DRUG EXPOSURE DURING PREGNANCY [None]
  - HYPOKINESIA NEONATAL [None]
  - MENTAL RETARDATION SEVERITY UNSPECIFIED [None]
  - NEONATAL DISORDER [None]
  - PAROTID GLAND ENLARGEMENT [None]
  - PAROTITIS [None]
  - PLATELET COUNT INCREASED [None]
